FAERS Safety Report 8341419-6 (Version None)
Quarter: 2012Q2

REPORT INFORMATION
  Report Type: 
  Country: None (occurrence: None)
  Receive Date: 20120507
  Receipt Date: 20120427
  Transmission Date: 20120825
  Serious: Yes (Hospitalization, Disabling)
  Sender: FDA-Public Use
  Company Number: US-MERCK-1112USA00801

PATIENT
  Age: 59 Year
  Sex: Female

DRUGS (2)
  1. FOSAMAX [Suspect]
     Indication: OSTEOPOROSIS
     Route: 048
     Dates: start: 20000530, end: 20091001
  2. FOSAMAX [Suspect]
     Route: 048
     Dates: start: 20000530, end: 20091001

REACTIONS (4)
  - LIMB INJURY [None]
  - FEMUR FRACTURE [None]
  - INTERVERTEBRAL DISC DISPLACEMENT [None]
  - SJOGREN'S SYNDROME [None]
